FAERS Safety Report 20642885 (Version 1)
Quarter: 2022Q1

REPORT INFORMATION
  Report Type: Spontaneous
  Country: US (occurrence: US)
  Receive Date: 20220328
  Receipt Date: 20220328
  Transmission Date: 20220423
  Serious: Yes (Other)
  Sender: FDA-Public Use
  Company Number: US-GLAXOSMITHKLINE-US2022GSK054758

PATIENT
  Sex: Female

DRUGS (15)
  1. ZANTAC [Suspect]
     Active Substance: RANITIDINE HYDROCHLORIDE
     Indication: Diarrhoea
     Dosage: 75 MG, QD
     Route: 065
     Dates: start: 200905, end: 201305
  2. ZANTAC [Suspect]
     Active Substance: RANITIDINE HYDROCHLORIDE
     Indication: Chromaturia
  3. ZANTAC [Suspect]
     Active Substance: RANITIDINE HYDROCHLORIDE
     Indication: Gastrointestinal carcinoma
  4. ZANTAC [Suspect]
     Active Substance: RANITIDINE HYDROCHLORIDE
     Indication: Diarrhoea
     Dosage: 75 MG, QD
     Route: 065
     Dates: start: 200905, end: 201305
  5. ZANTAC [Suspect]
     Active Substance: RANITIDINE HYDROCHLORIDE
     Indication: Chromaturia
  6. ZANTAC [Suspect]
     Active Substance: RANITIDINE HYDROCHLORIDE
     Indication: Gastrointestinal carcinoma
  7. RANITIDINE [Suspect]
     Active Substance: RANITIDINE
     Indication: Diarrhoea
     Dosage: 75 MG, QD
     Route: 065
     Dates: start: 200905, end: 201305
  8. RANITIDINE [Suspect]
     Active Substance: RANITIDINE
     Indication: Chromaturia
  9. RANITIDINE [Suspect]
     Active Substance: RANITIDINE
     Indication: Gastrointestinal carcinoma
  10. RANITIDINE [Suspect]
     Active Substance: RANITIDINE
     Indication: Diarrhoea
     Dosage: 75 MG, QD
     Route: 065
     Dates: start: 200905, end: 201305
  11. RANITIDINE [Suspect]
     Active Substance: RANITIDINE
     Indication: Chromaturia
  12. RANITIDINE [Suspect]
     Active Substance: RANITIDINE
     Indication: Gastrointestinal carcinoma
  13. RANITIDINE HYDROCHLORIDE [Suspect]
     Active Substance: RANITIDINE HYDROCHLORIDE
     Indication: Diarrhoea
     Dosage: 50 MG/ML, QD
     Route: 065
     Dates: start: 200905, end: 201305
  14. RANITIDINE HYDROCHLORIDE [Suspect]
     Active Substance: RANITIDINE HYDROCHLORIDE
     Indication: Chromaturia
  15. RANITIDINE HYDROCHLORIDE [Suspect]
     Active Substance: RANITIDINE HYDROCHLORIDE
     Indication: Gastrointestinal carcinoma

REACTIONS (1)
  - Gastrointestinal carcinoma [Unknown]
